FAERS Safety Report 23950417 (Version 1)
Quarter: 2024Q2

REPORT INFORMATION
  Report Type: Report from Study
  Country: US (occurrence: US)
  Receive Date: 20240607
  Receipt Date: 20240607
  Transmission Date: 20240716
  Serious: Yes (Other)
  Sender: FDA-Public Use
  Company Number: US-JAZZ PHARMACEUTICALS-2023-US-000413

PATIENT
  Age: 38 Year
  Sex: Male

DRUGS (12)
  1. XYWAV [Suspect]
     Active Substance: CALCIUM OXYBATE\MAGNESIUM OXYBATE\POTASSIUM OXYBATE\SODIUM OXYBATE
     Indication: Hypersomnia
     Dosage: 2.25 GRAM, BID
  2. XYWAV [Suspect]
     Active Substance: CALCIUM OXYBATE\MAGNESIUM OXYBATE\POTASSIUM OXYBATE\SODIUM OXYBATE
     Dosage: 4.5 GRAM, BID
  3. DEXTROAMPHETAMINE [Suspect]
     Active Substance: DEXTROAMPHETAMINE
     Indication: Product used for unknown indication
     Dosage: UNK
  4. TEMAZEPAM [Suspect]
     Active Substance: TEMAZEPAM
     Indication: Product used for unknown indication
  5. CONCERTA [Concomitant]
     Active Substance: METHYLPHENIDATE HYDROCHLORIDE
     Dosage: UNK
     Dates: start: 20230207
  6. VENLAFAXINE HCL [Concomitant]
     Active Substance: VENLAFAXINE HYDROCHLORIDE
     Dosage: UNK
     Dates: start: 20230601
  7. ZENZEDI [Concomitant]
     Active Substance: DEXTROAMPHETAMINE SULFATE
     Dosage: 20 MILLIGRAM
  8. MIRTAZAPINE [Concomitant]
     Active Substance: MIRTAZAPINE
     Dosage: UNK
     Dates: start: 20231015
  9. LEVOCETIRIZINE [Concomitant]
     Active Substance: LEVOCETIRIZINE
     Dosage: UNK
     Dates: start: 20230701
  10. MODAFINIL [Concomitant]
     Active Substance: MODAFINIL
     Dosage: UNK
     Dates: start: 20230927
  11. ADDERALL [Concomitant]
     Active Substance: AMPHETAMINE ASPARTATE\AMPHETAMINE SULFATE\DEXTROAMPHETAMINE SACCHARATE\DEXTROAMPHETAMINE SULFATE
  12. VILAZODONE [Concomitant]
     Active Substance: VILAZODONE

REACTIONS (10)
  - Surgery [Unknown]
  - Mental disorder [Unknown]
  - Poor quality sleep [Unknown]
  - Nasal congestion [Unknown]
  - Feeling abnormal [Unknown]
  - Drug tolerance [Not Recovered/Not Resolved]
  - Alcohol intolerance [Unknown]
  - Fatigue [Unknown]
  - Product administration interrupted [Unknown]
  - Intentional product use issue [Unknown]

NARRATIVE: CASE EVENT DATE: 20240305
